FAERS Safety Report 6209975-1 (Version None)
Quarter: 2009Q2

REPORT INFORMATION
  Report Type: 
  Country: None (occurrence: None)
  Receive Date: 20090601
  Receipt Date: 20090518
  Transmission Date: 20091009
  Serious: Yes (Other)
  Sender: FDA-Public Use
  Company Number: PL-PFIZER INC-2009196211

PATIENT
  Age: 30 Year

DRUGS (3)
  1. DOSTINEX [Suspect]
     Indication: HYPERPROLACTINAEMIA
     Dosage: UNK
     Dates: start: 20080901
  2. BISOCARD [Concomitant]
  3. TERTENSIF [Concomitant]

REACTIONS (7)
  - ANGINA PECTORIS [None]
  - HEART RATE DECREASED [None]
  - MOOD ALTERED [None]
  - NERVOUS SYSTEM DISORDER [None]
  - SOMNOLENCE [None]
  - VISUAL FIELD DEFECT [None]
  - WEIGHT INCREASED [None]
